FAERS Safety Report 7207386-3 (Version None)
Quarter: 2011Q1

REPORT INFORMATION
  Report Type: 
  Country: None (occurrence: None)
  Receive Date: 20110103
  Receipt Date: 20101222
  Transmission Date: 20110831
  Serious: Yes (Hospitalization)
  Sender: FDA-Public Use
  Company Number: DK-ASTRAZENECA-2010SE26121

PATIENT
  Age: 691 Month
  Sex: Male

DRUGS (4)
  1. LAMOTRIGINE [Suspect]
  2. SEROQUEL [Suspect]
     Route: 048
  3. EFFEXOR [Suspect]
     Route: 048
  4. ANTABUSE [Suspect]
     Route: 048

REACTIONS (2)
  - CONSTIPATION [None]
  - ILEUS PARALYTIC [None]
